FAERS Safety Report 15558630 (Version 2)
Quarter: 2019Q1

REPORT INFORMATION
  Report Type: Spontaneous
  Country: DE (occurrence: DE)
  Receive Date: 20181029
  Receipt Date: 20190315
  Transmission Date: 20190417
  Serious: Yes (Hospitalization, Other)
  Sender: FDA-Public Use
  Company Number: DE-AUROBINDO-AUR-APL-2018-052487

PATIENT

DRUGS (1)
  1. AMIODARONE [Suspect]
     Active Substance: AMIODARONE
     Indication: ATRIAL FIBRILLATION
     Dosage: UNK
     Route: 065

REACTIONS (6)
  - Dizziness [Recovered/Resolved]
  - Dyspnoea [Recovered/Resolved]
  - Syncope [Recovered/Resolved]
  - Tachycardia [Recovered/Resolved]
  - Cardiac failure [Recovered/Resolved]
  - Atrial fibrillation [Recovered/Resolved]

NARRATIVE: CASE EVENT DATE: 20180528
